FAERS Safety Report 5298807-4 (Version None)
Quarter: 2007Q2

REPORT INFORMATION
  Report Type: 
  Country: None (occurrence: None)
  Receive Date: 20070417
  Receipt Date: 20070405
  Transmission Date: 20071010
  Serious: Yes (Other)
  Sender: FDA-Public Use
  Company Number: GB-ROCHE-492979

PATIENT
  Age: 64 Year
  Sex: Female

DRUGS (2)
  1. CAPECITABINE [Suspect]
     Route: 042
     Dates: start: 20040715, end: 20050415
  2. GEMCITABINE HCL [Suspect]
     Route: 065
     Dates: start: 20040715, end: 20041015

REACTIONS (2)
  - CONVULSION [None]
  - NUCLEAR MAGNETIC RESONANCE IMAGING BRAIN ABNORMAL [None]
